FAERS Safety Report 21069470 (Version 2)
Quarter: 2022Q3

REPORT INFORMATION
  Report Type: Spontaneous
  Country: IR (occurrence: IR)
  Receive Date: 20220712
  Receipt Date: 20220823
  Transmission Date: 20221026
  Serious: Yes (Death, Other)
  Sender: FDA-Public Use
  Company Number: IR-PFIZER INC-202200914009

PATIENT
  Age: 21 Year
  Sex: Female

DRUGS (6)
  1. PIPERACILLIN SODIUM\TAZOBACTAM SODIUM [Suspect]
     Active Substance: PIPERACILLIN SODIUM\TAZOBACTAM SODIUM
     Indication: Pneumonia bacterial
     Dosage: UNK
  2. PIPERACILLIN SODIUM\TAZOBACTAM SODIUM [Suspect]
     Active Substance: PIPERACILLIN SODIUM\TAZOBACTAM SODIUM
     Indication: Acinetobacter bacteraemia
  3. LINEZOLID [Suspect]
     Active Substance: LINEZOLID
     Indication: Pneumonia bacterial
     Dosage: UNK
  4. LINEZOLID [Suspect]
     Active Substance: LINEZOLID
     Indication: Acinetobacter bacteraemia
  5. COLISTIN [Suspect]
     Active Substance: COLISTIN
     Indication: Pneumonia bacterial
     Dosage: UNK
  6. COLISTIN [Suspect]
     Active Substance: COLISTIN
     Indication: Acinetobacter bacteraemia

REACTIONS (1)
  - Drug ineffective [Fatal]
